FAERS Safety Report 10043185 (Version 1)
Quarter: 2014Q1

REPORT INFORMATION
  Report Type: Spontaneous
  Country: US (occurrence: None)
  Receive Date: 20140327
  Receipt Date: 20140327
  Transmission Date: 20141002
  Serious: Yes (Hospitalization, Disabling, Other)
  Sender: FDA-Public Use
  Company Number: None

PATIENT
  Age: 21 Year
  Sex: Female
  Weight: 55 kg

DRUGS (1)
  1. ZOSYN [Suspect]
     Indication: WHITE BLOOD CELL COUNT INCREASED
     Dosage: THREE TIMES DAILY, INTO A VEIN
     Route: 042
     Dates: start: 20120228, end: 20120229

REACTIONS (2)
  - Herpes zoster [None]
  - Scar [None]
